FAERS Safety Report 5521491-9 (Version None)
Quarter: 2007Q4

REPORT INFORMATION
  Report Type: 
  Country: None (occurrence: None)
  Receive Date: 20071119
  Receipt Date: 20071107
  Transmission Date: 20080405
  Serious: Yes (Hospitalization, Other)
  Sender: FDA-Public Use
  Company Number: US-PFIZER INC-2007096242

PATIENT
  Sex: Female
  Weight: 97.272 kg

DRUGS (7)
  1. CHANTIX [Suspect]
     Indication: SMOKING CESSATION THERAPY
  2. MEDROXYPROGESTERONE ACETATE [Concomitant]
     Indication: CONTRACEPTION
  3. TRAZODONE HCL [Concomitant]
  4. NEXIUM [Concomitant]
  5. ATIVAN [Concomitant]
  6. LEXAPRO [Concomitant]
  7. DEPAKOTE [Concomitant]

REACTIONS (2)
  - CHRONIC OBSTRUCTIVE PULMONARY DISEASE [None]
  - SLEEP DISORDER [None]
